FAERS Safety Report 6019733-9 (Version None)
Quarter: 2008Q4

REPORT INFORMATION
  Report Type: 
  Country: None (occurrence: None)
  Receive Date: 20081224
  Receipt Date: 20081212
  Transmission Date: 20090506
  Serious: Yes (Hospitalization, Disabling)
  Sender: FDA-Public Use
  Company Number: NL-PFIZER INC-2008154078

PATIENT

DRUGS (1)
  1. DOSTINEX [Suspect]
     Indication: PITUITARY TUMOUR
     Dosage: UNK
     Route: 048
     Dates: start: 20040101, end: 20080101

REACTIONS (3)
  - ARRHYTHMIA [None]
  - CARDIAC VALVE DISEASE [None]
  - OSTEOARTHRITIS [None]
